FAERS Safety Report 5181054-4 (Version None)
Quarter: 2006Q4

REPORT INFORMATION
  Report Type: 
  Country: None (occurrence: None)
  Receive Date: 20061213
  Receipt Date: 20061213
  Transmission Date: 20070319
  Serious: Yes (Hospitalization)
  Sender: FDA-Public Use
  Company Number: None

PATIENT
  Sex: Male
  Weight: 82.1011 kg

DRUGS (1)
  1. ILOPROST 5.0 MCG COTHERIX [Suspect]
     Indication: LUNG DISORDER
     Dosage: 5.0 MCG 6 TO 9 TIME A DAY INHALED
     Route: 055
     Dates: start: 20061201, end: 20061206

REACTIONS (2)
  - BRONCHIAL OBSTRUCTION [None]
  - CHEST DISCOMFORT [None]
